FAERS Safety Report 7342705-9 (Version None)
Quarter: 2011Q1

REPORT INFORMATION
  Report Type: 
  Country: None (occurrence: None)
  Receive Date: 20110310
  Receipt Date: 20110304
  Transmission Date: 20110831
  Serious: Yes (Death, Other)
  Sender: FDA-Public Use
  Company Number: GB-PFIZER INC-2011035206

PATIENT
  Age: 51 Year
  Sex: Female
  Weight: 50 kg

DRUGS (6)
  1. NORADRENALINE [Concomitant]
     Indication: BLOOD PRESSURE DECREASED
     Dosage: 0.6 MCG/KG/MIN
     Route: 042
  2. MORPHINE [Concomitant]
  3. SILDENAFIL CITRATE [Suspect]
     Indication: PULMONARY ARTERIAL HYPERTENSION
     Dosage: 10 MG, 3X/DAY
     Route: 042
     Dates: start: 20110211, end: 20110214
  4. NORADRENALINE [Concomitant]
     Dosage: 0.9 MCG/KG/MIN
  5. SILDENAFIL CITRATE [Suspect]
     Indication: PULMONARY FIBROSIS
  6. MIDAZOLAM [Concomitant]

REACTIONS (2)
  - HYPOTENSION [None]
  - DEATH [None]
